FAERS Safety Report 11037191 (Version 1)
Quarter: 2015Q2

REPORT INFORMATION
  Report Type: Spontaneous
  Country: US (occurrence: US)
  Receive Date: 20150416
  Receipt Date: 20150416
  Transmission Date: 20150821
  Serious: Yes (Hospitalization)
  Sender: FDA-Public Use
  Company Number: US-BEH-2015050234

PATIENT
  Sex: Female
  Weight: 75 kg

DRUGS (26)
  1. PRIVIGEN [Suspect]
     Active Substance: HUMAN IMMUNOGLOBULIN G
     Indication: IMMUNODEFICIENCY COMMON VARIABLE
     Route: 042
  2. FOLIC ACID. [Concomitant]
     Active Substance: FOLIC ACID
  3. POTASSIUM CHLORIDE. [Concomitant]
     Active Substance: POTASSIUM CHLORIDE
  4. SCOPOLAMINE [Concomitant]
     Active Substance: SCOPOLAMINE
     Route: 062
  5. NEURONTIN [Concomitant]
     Active Substance: GABAPENTIN
  6. TOPAMAX [Concomitant]
     Active Substance: TOPIRAMATE
  7. EPIPEN [Concomitant]
     Active Substance: EPINEPHRINE
  8. NYSTATIN. [Concomitant]
     Active Substance: NYSTATIN
  9. EFFEXOR [Concomitant]
     Active Substance: VENLAFAXINE HYDROCHLORIDE
  10. ACETAMINOPHEN. [Concomitant]
     Active Substance: ACETAMINOPHEN
  11. LIDOCAINE. [Concomitant]
     Active Substance: LIDOCAINE
  12. FROVA [Concomitant]
     Active Substance: FROVATRIPTAN SUCCINATE
  13. MECLIZINE HCL [Concomitant]
     Active Substance: MECLIZINE HYDROCHLORIDE
  14. AZITHROMYCIN [Concomitant]
     Active Substance: AZITHROMYCIN ANHYDROUS
  15. TEGRETOL [Concomitant]
     Active Substance: CARBAMAZEPINE
  16. PRIVIGEN [Suspect]
     Active Substance: HUMAN IMMUNOGLOBULIN G
     Route: 042
  17. MOXYFLOXIN [Concomitant]
  18. ZOFRAN [Concomitant]
     Active Substance: ONDANSETRON HYDROCHLORIDE
  19. NAMENDA [Concomitant]
     Active Substance: MEMANTINE HYDROCHLORIDE
  20. MARINOL [Concomitant]
     Active Substance: DRONABINOL
  21. DIPHENHYDRAMINE [Concomitant]
     Active Substance: DIPHENHYDRAMINE
  22. ATIVAN [Concomitant]
     Active Substance: LORAZEPAM
  23. HYDROCORTISONE. [Concomitant]
     Active Substance: HYDROCORTISONE
  24. CHLORTHALIDONE. [Concomitant]
     Active Substance: CHLORTHALIDONE
  25. LYRICA [Concomitant]
     Active Substance: PREGABALIN
  26. AMITRIPTYLINE HCL [Concomitant]
     Active Substance: AMITRIPTYLINE

REACTIONS (1)
  - Serum sickness [Unknown]
